FAERS Safety Report 7544962-2 (Version None)
Quarter: 2011Q2

REPORT INFORMATION
  Report Type: 
  Country: None (occurrence: None)
  Receive Date: 20110614
  Receipt Date: 20110523
  Transmission Date: 20111010
  Serious: Yes (Other)
  Sender: FDA-Public Use
  Company Number: US-BAYER-2011-028889

PATIENT
  Sex: Male
  Weight: 56.4 kg

DRUGS (21)
  1. MAGNEVIST [Suspect]
     Indication: NUCLEAR MAGNETIC RESONANCE IMAGING
     Dosage: UNK
     Route: 042
     Dates: start: 20040911, end: 20040911
  2. OMNISCAN [Suspect]
     Indication: ANGIOGRAM
  3. PROCRIT [Concomitant]
  4. MAGNEVIST [Suspect]
  5. METOPROLOL SUCCINATE [Concomitant]
  6. OMNISCAN [Suspect]
  7. MAGNEVIST [Suspect]
     Dosage: UNK
     Dates: start: 20040918, end: 20040918
  8. RENAGEL [Concomitant]
  9. NIFEDIPINE [Concomitant]
  10. CLONIDINE [Concomitant]
  11. COREG [Concomitant]
  12. OMNISCAN [Suspect]
     Indication: NUCLEAR MAGNETIC RESONANCE IMAGING
     Dosage: UNK
     Dates: start: 20050510, end: 20050510
  13. OMNISCAN [Suspect]
  14. LISINOPRIL [Concomitant]
  15. CAPTOPRIL [Concomitant]
  16. MAGNEVIST [Suspect]
     Dosage: UNK
     Dates: start: 20050517, end: 20050517
  17. NORVASC [Concomitant]
  18. MAGNEVIST [Suspect]
     Indication: ANGIOGRAM
     Dosage: UNK
     Route: 042
     Dates: start: 20040916, end: 20040916
  19. MAGNEVIST [Suspect]
     Indication: NUCLEAR MAGNETIC RESONANCE IMAGING BRAIN
     Dosage: UNK
     Dates: start: 20040917, end: 20040917
  20. MAGNEVIST [Suspect]
     Indication: VENOGRAM
     Dosage: UNK
     Dates: start: 20051005, end: 20051005
  21. LABETALOL HCL [Concomitant]

REACTIONS (11)
  - TENDON DISORDER [None]
  - PAIN IN EXTREMITY [None]
  - ARTHRALGIA [None]
  - JOINT CONTRACTURE [None]
  - SKIN HYPERTROPHY [None]
  - SKIN INDURATION [None]
  - JOINT RANGE OF MOTION DECREASED [None]
  - SKIN HYPERPIGMENTATION [None]
  - NEPHROGENIC SYSTEMIC FIBROSIS [None]
  - ABASIA [None]
  - HYPOAESTHESIA [None]
